FAERS Safety Report 19510424 (Version 4)
Quarter: 2021Q3

REPORT INFORMATION
  Report Type: Spontaneous
  Country: BR (occurrence: BR)
  Receive Date: 20210709
  Receipt Date: 20210903
  Transmission Date: 20211014
  Serious: Yes (Other)
  Sender: FDA-Public Use
  Company Number: BR-GLAXOSMITHKLINE-BR2021AMR148302

PATIENT
  Age: 80 Year
  Sex: Female

DRUGS (2)
  1. TRELEGY ELLIPTA [Suspect]
     Active Substance: FLUTICASONE FUROATE\UMECLIDINIUM BROMIDE\VILANTEROL TRIFENATATE
     Indication: ASTHMA
     Dosage: 1 PUFF(S), QD, OF 100/62.5/25 MCG
     Route: 055
     Dates: start: 202106, end: 20210705
  2. TRELEGY ELLIPTA [Suspect]
     Active Substance: FLUTICASONE FUROATE\UMECLIDINIUM BROMIDE\VILANTEROL TRIFENATATE
     Indication: ASTHMA
     Dosage: 1 PUFF(S), QD (100/62.5/25MCG, 30 DOSES)
     Route: 055

REACTIONS (7)
  - Fatigue [Unknown]
  - Drug ineffective for unapproved indication [Recovered/Resolved]
  - Asthmatic crisis [Recovered/Resolved]
  - Product use in unapproved indication [Unknown]
  - Intentional overdose [Recovered/Resolved]
  - Product use issue [Unknown]
  - Product complaint [Unknown]

NARRATIVE: CASE EVENT DATE: 20210705
